FAERS Safety Report 4819631-X (Version None)
Quarter: 2005Q4

REPORT INFORMATION
  Report Type: 
  Country: None (occurrence: None)
  Receive Date: 20051102
  Receipt Date: 20051018
  Transmission Date: 20060501
  Serious: Yes (Other)
  Sender: FDA-Public Use
  Company Number: C-05-0047

PATIENT
  Age: 49 Year
  Sex: Male
  Weight: 85.2762 kg

DRUGS (1)
  1. SELENIUM SULFIDE [Suspect]
     Dosage: 2 TO 3 TIMES EVERY SEVEN DAYS

REACTIONS (2)
  - DRUG INEFFECTIVE [None]
  - SKIN ODOUR ABNORMAL [None]
